FAERS Safety Report 9200368 (Version 1)
Quarter: 2013Q1

REPORT INFORMATION
  Report Type: Spontaneous
  Country: US (occurrence: US)
  Receive Date: 20130329
  Receipt Date: 20130329
  Transmission Date: 20140127
  Serious: Yes (Other)
  Sender: FDA-Public Use
  Company Number: US-ASTRAZENECA-2013SE18562

PATIENT
  Age: 697 Month
  Sex: Female

DRUGS (32)
  1. NEXIUM [Suspect]
     Indication: GASTROOESOPHAGEAL REFLUX DISEASE
     Route: 048
  2. CRESTOR [Suspect]
     Indication: HYPERLIPIDAEMIA
     Route: 048
     Dates: start: 20121020, end: 20121223
  3. ZOSYN [Suspect]
     Indication: URINARY TRACT INFECTION
     Route: 042
     Dates: start: 20120106, end: 20120108
  4. TOPAMAX [Suspect]
     Indication: DEPRESSION
     Dosage: DAILY
     Route: 048
     Dates: start: 2002, end: 2002
  5. NEURONTIN [Suspect]
     Indication: ANXIETY
     Route: 048
  6. ACTOS [Concomitant]
     Indication: TYPE 2 DIABETES MELLITUS
  7. VALIUM [Concomitant]
  8. WELLBUTRIN [Concomitant]
     Indication: DEPRESSION
  9. CITALOPRAM [Concomitant]
     Indication: DEPRESSION
  10. DIOVAN [Concomitant]
     Indication: FLUID RETENTION
  11. DIOVAN [Concomitant]
     Indication: RENAL DISORDER
  12. FERROUS SULFATE [Concomitant]
     Indication: HAEMORRHAGIC ANAEMIA
  13. PROPRANOLOL [Concomitant]
     Indication: TREMOR
  14. ASA [Concomitant]
     Indication: ATHEROSCLEROSIS PROPHYLAXIS
  15. VICODIN [Concomitant]
     Indication: MYALGIA
     Dosage: 5/500 MG, Q6 H, AS REQUIRED
  16. XANAX [Concomitant]
     Indication: RESTLESS LEGS SYNDROME
  17. XANAX [Concomitant]
     Indication: PANIC ATTACK
  18. XANAX [Concomitant]
     Indication: RESTLESS LEGS SYNDROME
  19. XANAX [Concomitant]
     Indication: PANIC ATTACK
  20. FAMCYCLOVIR [Concomitant]
     Indication: HERPES SIMPLEX
  21. FAMCYCLOVIR [Concomitant]
     Indication: HERPES SIMPLEX
  22. MULTIVITAMIN [Concomitant]
  23. LUTEIN [Concomitant]
  24. OMEGA 3 [Concomitant]
  25. OMEGA 6 [Concomitant]
  26. MAGNESIUM [Concomitant]
  27. ALPHA LIPOIC ACID [Concomitant]
  28. COQ10 [Concomitant]
  29. MULTI-B VITAMIN [Concomitant]
  30. VITAMIN C [Concomitant]
  31. LIPITOR [Concomitant]
  32. VYTORIN [Concomitant]

REACTIONS (16)
  - Diabetic neuropathy [Unknown]
  - Neuropathic arthropathy [Unknown]
  - Pain [Unknown]
  - Dyspnoea [Recovered/Resolved]
  - Urinary incontinence [Unknown]
  - Throat tightness [Unknown]
  - Pruritus [Recovered/Resolved]
  - Rash pruritic [Recovered/Resolved]
  - Drug hypersensitivity [Unknown]
  - Obesity [Unknown]
  - Fibromyalgia [Unknown]
  - Restless legs syndrome [Unknown]
  - Panic attack [Unknown]
  - Fatigue [Unknown]
  - Arthralgia [Recovered/Resolved with Sequelae]
  - Hypersensitivity [Unknown]
